FAERS Safety Report 11093851 (Version 1)
Quarter: 2015Q2

REPORT INFORMATION
  Report Type: Spontaneous
  Country: US (occurrence: US)
  Receive Date: 20150506
  Receipt Date: 20150506
  Transmission Date: 20150821
  Serious: No
  Sender: FDA-Public Use
  Company Number: US-ASTRAZENECA-2007BM13497

PATIENT
  Age: 53 Year
  Sex: Male
  Weight: 156.5 kg

DRUGS (8)
  1. BYETTA [Suspect]
     Active Substance: EXENATIDE
     Indication: TYPE 2 DIABETES MELLITUS
     Dosage: 025MG/ML,  5 UG TWO TIMES A DAY
     Route: 058
     Dates: start: 200506, end: 200507
  2. BYDUREON [Suspect]
     Active Substance: EXENATIDE
     Route: 058
  3. ALTACE [Concomitant]
     Active Substance: RAMIPRIL
     Indication: HYPERTENSION
     Dates: start: 20051017
  4. CRESTOR [Concomitant]
     Active Substance: ROSUVASTATIN CALCIUM
     Indication: BLOOD CHOLESTEROL INCREASED
     Route: 048
     Dates: start: 20060919
  5. BYETTA [Suspect]
     Active Substance: EXENATIDE
     Indication: TYPE 2 DIABETES MELLITUS
     Dosage: 025MG/ML, 10 UG TWO TIMES A DAY
     Route: 058
     Dates: start: 200507
  6. EXENATIDE [Concomitant]
     Active Substance: EXENATIDE
     Dosage: 10 MCG
  7. METFORMIN [Concomitant]
     Active Substance: METFORMIN HYDROCHLORIDE
     Indication: DIABETES MELLITUS
     Route: 048
     Dates: start: 20061128
  8. LEXAPRO [Concomitant]
     Active Substance: ESCITALOPRAM OXALATE
     Indication: DEPRESSION
     Dosage: UNK
     Dates: start: 200506, end: 2006

REACTIONS (6)
  - Influenza like illness [Recovered/Resolved]
  - Dizziness [Unknown]
  - Weight decreased [Not Recovered/Not Resolved]
  - Feeling abnormal [Recovered/Resolved]
  - Disturbance in attention [Unknown]
  - Nausea [Unknown]

NARRATIVE: CASE EVENT DATE: 200506
